FAERS Safety Report 21658511 (Version 1)
Quarter: 2022Q4

REPORT INFORMATION
  Report Type: Spontaneous
  Country: US (occurrence: None)
  Receive Date: 20221128
  Receipt Date: 20221128
  Transmission Date: 20230112
  Serious: Yes (Other)
  Sender: FDA-Public Use
  Company Number: None

PATIENT
  Age: 87 Year
  Sex: Male
  Weight: 72.57 kg

DRUGS (2)
  1. FERRIC POLYSACCHARIDE COMPLEX [Suspect]
     Active Substance: FERRIC POLYSACCHARIDE COMPLEX
     Indication: Haemoglobin decreased
     Dosage: FREQUENCY : DAILY;?
  2. FERRIC POLYSACCHARIDE COMPLEX [Suspect]
     Active Substance: FERRIC POLYSACCHARIDE COMPLEX
     Indication: Thalassaemia beta

REACTIONS (6)
  - Haematochezia [None]
  - Haemoglobin decreased [None]
  - Faeces discoloured [None]
  - Occult blood positive [None]
  - Thyroid hormones decreased [None]
  - Therapy interrupted [None]

NARRATIVE: CASE EVENT DATE: 20220506
